FAERS Safety Report 15983235 (Version 1)
Quarter: 2019Q1

REPORT INFORMATION
  Report Type: Spontaneous
  Country: US (occurrence: US)
  Receive Date: 20190125
  Receipt Date: 20190125
  Transmission Date: 20190418
  Serious: No
  Sender: FDA-Public Use
  Company Number: None

PATIENT
  Age: 61 Year
  Sex: Female

DRUGS (1)
  1. ENBREL [Suspect]
     Active Substance: ETANERCEPT
     Route: 058
     Dates: start: 20181219

REACTIONS (6)
  - Headache [None]
  - Cough [None]
  - Pulmonary congestion [None]
  - Malaise [None]
  - Dizziness [None]
  - Haemoptysis [None]

NARRATIVE: CASE EVENT DATE: 20190120
